FAERS Safety Report 24454830 (Version 2)
Quarter: 2024Q4

REPORT INFORMATION
  Report Type: Report from Study
  Country: US (occurrence: US)
  Receive Date: 20241017
  Receipt Date: 20241018
  Transmission Date: 20250114
  Serious: No
  Sender: ROCHE
  Company Number: US-ROCHE-3475794

PATIENT
  Age: 2 Year
  Sex: Female
  Weight: 10.7 kg

DRUGS (2)
  1. RITUXIMAB [Suspect]
     Active Substance: RITUXIMAB
     Indication: Opsoclonus myoclonus
     Dosage: TOTAL VOLUME 500 ML
     Route: 042
  2. ACETAMINOPHEN [Concomitant]
     Active Substance: ACETAMINOPHEN

REACTIONS (2)
  - Rash [Unknown]
  - Urticaria [Unknown]
